FAERS Safety Report 26011378 (Version 1)
Quarter: 2025Q4

REPORT INFORMATION
  Report Type: Report from Study
  Country: US (occurrence: US)
  Receive Date: 20251107
  Receipt Date: 20251107
  Transmission Date: 20260117
  Serious: Yes (Other)
  Sender: ABBVIE
  Company Number: US-ABBVIE-6487636

PATIENT
  Age: 82 Year
  Sex: Female
  Weight: 64.41 kg

DRUGS (6)
  1. CREON [Suspect]
     Active Substance: PANCRELIPASE AMYLASE\PANCRELIPASE LIPASE\PANCRELIPASE PROTEASE
     Indication: Pancreatic failure
     Dosage: TIME INTERVAL: 0.11111111 DAYS: FORM STRENGTH: 36000 UNIT PRODUCT
     Route: 048
     Dates: start: 20240702
  2. HYDROCODONE [Concomitant]
     Active Substance: HYDROCODONE
     Indication: Pain
  3. FUROSEMIDE [Concomitant]
     Active Substance: FUROSEMIDE
     Indication: Renal disorder
  4. CALCITRIOL [Concomitant]
     Active Substance: CALCITRIOL
     Indication: Renal disorder
  5. COLESTIPOL [Concomitant]
     Active Substance: COLESTIPOL
     Indication: Pancreatic failure
  6. CARVEDILOL [Concomitant]
     Active Substance: CARVEDILOL
     Indication: Cardiac disorder

REACTIONS (1)
  - Precancerous condition [Recovered/Resolved]

NARRATIVE: CASE EVENT DATE: 20250901
